FAERS Safety Report 4469412-4 (Version None)
Quarter: 2004Q4

REPORT INFORMATION
  Report Type: 
  Country: None (occurrence: None)
  Receive Date: 20041008
  Receipt Date: 20040629
  Transmission Date: 20050328
  Serious: No
  Sender: FDA-Public Use
  Company Number: US-BRISTOL-MYERS SQUIBB COMPANY-12629176

PATIENT
  Age: 72 Year
  Sex: Male
  Weight: 94 kg

DRUGS (1)
  1. AVAPRO [Suspect]
     Indication: HYPERTENSION
     Dosage: DURATION: 4-5 YEARS
     Route: 048

REACTIONS (2)
  - ARTHRALGIA [None]
  - PAIN IN EXTREMITY [None]
